FAERS Safety Report 4477917-5 (Version None)
Quarter: 2004Q4

REPORT INFORMATION
  Report Type: 
  Country: None (occurrence: None)
  Receive Date: 20041014
  Receipt Date: 20040930
  Transmission Date: 20050328
  Serious: Yes (Hospitalization)
  Sender: FDA-Public Use
  Company Number: M2004-1479

PATIENT
  Sex: Male
  Weight: 56 kg

DRUGS (1)
  1. RIMSTAR  (ISONIAZIDE, ETHAMBUTOL DIHYDROCHLORIDE, PYRAZINAMIDE, RIFAMP [Suspect]
     Indication: RENAL TUBERCULOSIS
     Dosage: 2 DF, BID, ORAL
     Route: 048
     Dates: start: 20040513, end: 20040520

REACTIONS (5)
  - ADRENOCORTICAL INSUFFICIENCY CHRONIC [None]
  - HEPATITIS TOXIC [None]
  - HYPOTENSION [None]
  - PROSTRATION [None]
  - WEIGHT DECREASED [None]
